FAERS Safety Report 13531409 (Version 2)
Quarter: 2017Q2

REPORT INFORMATION
  Report Type: Spontaneous
  Country: GB (occurrence: GB)
  Receive Date: 20170510
  Receipt Date: 20170620
  Transmission Date: 20170830
  Serious: Yes (Hospitalization)
  Sender: FDA-Public Use
  Company Number: GB-BAXTER-2017BAX019956

PATIENT
  Age: 87 Year
  Sex: Male

DRUGS (11)
  1. LINEZOLID. [Suspect]
     Active Substance: LINEZOLID
     Indication: DEVICE RELATED INFECTION
     Dosage: OD, PER ORAL (PO)
     Route: 048
     Dates: start: 20170422, end: 20170519
  2. DAPTOMYCIN. [Suspect]
     Active Substance: DAPTOMYCIN
     Indication: DEVICE RELATED INFECTION
     Dosage: ONCE A DAY, WITH SALINE
     Route: 042
     Dates: start: 20170227, end: 20170311
  3. PREDNISOLONE. [Concomitant]
     Active Substance: PREDNISOLONE
     Indication: PRODUCT USED FOR UNKNOWN INDICATION
     Dosage: OD, PER ORAL
     Route: 048
  4. SODIUM CHLORIDE 0.9% INTRAVENOUS INFUSION BP [Suspect]
     Active Substance: SODIUM CHLORIDE
     Indication: MEDICATION DILUTION
     Dosage: ONCE A DAY
     Route: 042
     Dates: start: 20170227, end: 20170311
  5. LANSOPRAZOLE. [Concomitant]
     Active Substance: LANSOPRAZOLE
     Indication: PRODUCT USED FOR UNKNOWN INDICATION
     Dosage: OD, PER ORAL (PO)
     Route: 048
  6. DIHYDROCODEINE [Concomitant]
     Active Substance: DIHYDROCODEINE
     Indication: ANALGESIC THERAPY
     Dosage: QDS, WHEN NECESSARY
     Route: 048
  7. DAPTOMYCIN. [Suspect]
     Active Substance: DAPTOMYCIN
     Dosage: ONCE A DAY
     Route: 042
     Dates: start: 20170311, end: 20170422
  8. AMLODIPINE [Concomitant]
     Active Substance: AMLODIPINE BESYLATE
     Indication: BLOOD PRESSURE MANAGEMENT
     Dosage: PER ORAL, OD
     Route: 048
  9. SENNA [Concomitant]
     Active Substance: SENNA LEAF\SENNOSIDES\SENNOSIDES A AND B
     Indication: LAXATIVE SUPPORTIVE CARE
     Dosage: DAILY AT NIGHT
     Route: 048
  10. PARACETAMOL WITH DF118 [Concomitant]
     Indication: PAIN
     Dosage: QDS, ACUTE TREATMENT
     Route: 048
  11. DALTEPARIN [Concomitant]
     Active Substance: DALTEPARIN
     Indication: THROMBOSIS PROPHYLAXIS
     Dosage: 5000 UNITS, WHILE ON IV ANTIBIOTICS
     Route: 058

REACTIONS (2)
  - Eosinophilic pneumonia [Recovering/Resolving]
  - Drug eruption [Recovering/Resolving]

NARRATIVE: CASE EVENT DATE: 20170425
